FAERS Safety Report 17095641 (Version 1)
Quarter: 2019Q4

REPORT INFORMATION
  Report Type: Spontaneous
  Country: US (occurrence: US)
  Receive Date: 20191201
  Receipt Date: 20191201
  Transmission Date: 20200122
  Serious: Yes (Hospitalization)
  Sender: FDA-Public Use
  Company Number: US-VERTEX PHARMACEUTICALS-2019-011879

PATIENT
  Age: 26 Year
  Sex: Female

DRUGS (5)
  1. CAYSTON [Concomitant]
     Active Substance: AZTREONAM
  2. CREON [Concomitant]
     Active Substance: PANCRELIPASE AMYLASE\PANCRELIPASE LIPASE\PANCRELIPASE PROTEASE
  3. NEXIUM I.V. [Concomitant]
     Active Substance: ESOMEPRAZOLE SODIUM
  4. SYMDEKO [Suspect]
     Active Substance: IVACAFTOR\TEZACAFTOR
     Indication: CYSTIC FIBROSIS
     Dosage: TEZACAFTOR 100 MG, IVACAFTOR 150 MG AM; IVACAFTOR 150 MG PM
     Route: 048
     Dates: start: 20180320, end: 20191121
  5. TOBI [Concomitant]
     Active Substance: TOBRAMYCIN

REACTIONS (2)
  - Infective pulmonary exacerbation of cystic fibrosis [Unknown]
  - Viral infection [Unknown]

NARRATIVE: CASE EVENT DATE: 20191115
